FAERS Safety Report 6161906-9 (Version None)
Quarter: 2009Q2

REPORT INFORMATION
  Report Type: 
  Country: None (occurrence: None)
  Receive Date: 20090421
  Receipt Date: 20090416
  Transmission Date: 20091009
  Serious: Yes (Life-Threatening)
  Sender: FDA-Public Use
  Company Number: B0570485A

PATIENT
  Sex: Female
  Weight: 62 kg

DRUGS (8)
  1. ARTIST [Suspect]
     Dosage: 10MG PER DAY
     Route: 048
     Dates: start: 20040929
  2. BEPRICOR [Suspect]
     Indication: ATRIAL FLUTTER
     Dosage: 100MG TWICE PER DAY
     Route: 048
     Dates: start: 20070403, end: 20080725
  3. DIOVAN [Concomitant]
     Dates: start: 20040929
  4. AMLODIPINE [Concomitant]
     Dates: start: 20040929
  5. ASPIRIN [Concomitant]
     Dates: start: 20040929
  6. CONIEL [Concomitant]
     Dates: start: 20040929
  7. DEPAS [Concomitant]
     Dates: start: 20040929
  8. POTASSIUM CHLORIDE [Concomitant]
     Dates: start: 20080815

REACTIONS (11)
  - ATRIAL FLUTTER [None]
  - BUNDLE BRANCH BLOCK RIGHT [None]
  - CARDIAC FAILURE [None]
  - DISCOMFORT [None]
  - DIZZINESS POSTURAL [None]
  - ELECTROCARDIOGRAM QT PROLONGED [None]
  - OEDEMA PERIPHERAL [None]
  - PULSE ABSENT [None]
  - TORSADE DE POINTES [None]
  - VENTRICULAR EXTRASYSTOLES [None]
  - WEIGHT INCREASED [None]
